FAERS Safety Report 25047619 (Version 1)
Quarter: 2025Q1

REPORT INFORMATION
  Report Type: Spontaneous
  Country: PT (occurrence: PT)
  Receive Date: 20250306
  Receipt Date: 20250306
  Transmission Date: 20250408
  Serious: Yes (Other)
  Sender: MYLAN
  Company Number: PT-ORESUND-25OPAJY0095P

PATIENT
  Age: 59 Year
  Sex: Male

DRUGS (20)
  1. FINASTERIDE [Suspect]
     Active Substance: FINASTERIDE
     Indication: Product used for unknown indication
  2. FINASTERIDE [Suspect]
     Active Substance: FINASTERIDE
     Route: 065
  3. FINASTERIDE [Suspect]
     Active Substance: FINASTERIDE
     Route: 065
  4. FINASTERIDE [Suspect]
     Active Substance: FINASTERIDE
  5. TAMSULOSIN [Suspect]
     Active Substance: TAMSULOSIN
     Indication: Product used for unknown indication
  6. TAMSULOSIN [Suspect]
     Active Substance: TAMSULOSIN
     Route: 065
  7. TAMSULOSIN [Suspect]
     Active Substance: TAMSULOSIN
     Route: 065
  8. TAMSULOSIN [Suspect]
     Active Substance: TAMSULOSIN
  9. QUETIAPINE [Suspect]
     Active Substance: QUETIAPINE
     Indication: Product used for unknown indication
  10. QUETIAPINE [Suspect]
     Active Substance: QUETIAPINE
     Route: 065
  11. QUETIAPINE [Suspect]
     Active Substance: QUETIAPINE
     Route: 065
  12. QUETIAPINE [Suspect]
     Active Substance: QUETIAPINE
  13. METHOTREXATE [Suspect]
     Active Substance: METHOTREXATE
     Indication: Chemotherapy
  14. METHOTREXATE [Suspect]
     Active Substance: METHOTREXATE
     Route: 065
  15. METHOTREXATE [Suspect]
     Active Substance: METHOTREXATE
     Route: 065
  16. METHOTREXATE [Suspect]
     Active Substance: METHOTREXATE
  17. PREDNISOLONE [Suspect]
     Active Substance: PREDNISOLONE
     Indication: Product used for unknown indication
  18. PREDNISOLONE [Suspect]
     Active Substance: PREDNISOLONE
     Route: 048
  19. PREDNISOLONE [Suspect]
     Active Substance: PREDNISOLONE
     Route: 048
  20. PREDNISOLONE [Suspect]
     Active Substance: PREDNISOLONE

REACTIONS (6)
  - Uveitis [Recovered/Resolved]
  - Periphlebitis [Recovered/Resolved]
  - Vitritis [Recovered/Resolved]
  - B-cell lymphoma [Recovered/Resolved]
  - Mania [Recovered/Resolved]
  - Off label use [Unknown]
